FAERS Safety Report 11972176 (Version 3)
Quarter: 2016Q1

REPORT INFORMATION
  Report Type: Spontaneous
  Country: CA (occurrence: CA)
  Receive Date: 20160128
  Receipt Date: 20160204
  Transmission Date: 20160526
  Serious: Yes (Death, Other)
  Sender: FDA-Public Use
  Company Number: PHHY2016CA009452

PATIENT
  Age: 44 Year
  Sex: Female

DRUGS (4)
  1. PREDNISONE. [Suspect]
     Active Substance: PREDNISONE
     Indication: CENTRAL NERVOUS SYSTEM LYMPHOMA
     Dosage: UNK
     Route: 065
     Dates: start: 201412
  2. MYCOPHENOLATE [Suspect]
     Active Substance: MYCOPHENOLIC ACID
     Indication: CENTRAL NERVOUS SYSTEM LYMPHOMA
     Dosage: UNK
     Route: 065
     Dates: start: 201412
  3. MYCOPHENOLATE [Suspect]
     Active Substance: MYCOPHENOLIC ACID
     Indication: IMMUNOSUPPRESSANT DRUG THERAPY
  4. PREDNISONE. [Suspect]
     Active Substance: PREDNISONE
     Indication: IMMUNOSUPPRESSANT DRUG THERAPY

REACTIONS (12)
  - Upper motor neurone lesion [Fatal]
  - Gait disturbance [Fatal]
  - Central nervous system lesion [Fatal]
  - Depressed level of consciousness [Fatal]
  - Condition aggravated [Fatal]
  - Hydrocephalus [Unknown]
  - Intraventricular haemorrhage [Recovering/Resolving]
  - Dysmetria [Fatal]
  - Seizure [Unknown]
  - Product use issue [Unknown]
  - Central nervous system lymphoma [Fatal]
  - Coma [Fatal]

NARRATIVE: CASE EVENT DATE: 201501
